FAERS Safety Report 4569197-7 (Version None)
Quarter: 2005Q1

REPORT INFORMATION
  Report Type: 
  Country: None (occurrence: None)
  Receive Date: 20050126
  Receipt Date: 20050126
  Transmission Date: 20050727
  Serious: Yes (Life-Threatening)
  Sender: FDA-Public Use
  Company Number: None

PATIENT
  Age: 63 Year
  Sex: Male
  Weight: 93.3 kg

DRUGS (2)
  1. INTEGRILIN [Suspect]
  2. EPTIFIBATIDE (LOAD) [Suspect]
     Dosage: 17 MGIV
     Route: 042
     Dates: start: 20040317, end: 20040317

REACTIONS (1)
  - THROMBOCYTOPENIA [None]
